FAERS Safety Report 19694292 (Version 4)
Quarter: 2021Q3

REPORT INFORMATION
  Report Type: Spontaneous
  Country: JP (occurrence: JP)
  Receive Date: 20210813
  Receipt Date: 20210922
  Transmission Date: 20211014
  Serious: Yes (Death, Life-Threatening, Hospitalization, Other)
  Sender: FDA-Public Use
  Company Number: JP-SA-2021SA266507

PATIENT
  Age: 79 Year
  Sex: Male

DRUGS (10)
  1. OXALIPLATIN. [Suspect]
     Active Substance: OXALIPLATIN
     Indication: CHEMOTHERAPY
     Dosage: EVERY 3 WEEKS, DAY 1, 200 MG/DAY, 6TH TO 8TH COURSES WERE REDUCED
  2. CAPECITABINE. [Suspect]
     Active Substance: CAPECITABINE
     Indication: CHEMOTHERAPY
  3. CAPECITABINE. [Suspect]
     Active Substance: CAPECITABINE
     Indication: COLORECTAL CANCER
  4. CAPECITABINE. [Suspect]
     Active Substance: CAPECITABINE
     Indication: TUMOUR INVASION
  5. OXALIPLATIN. [Suspect]
     Active Substance: OXALIPLATIN
     Indication: COLON CANCER STAGE IV
     Dosage: EVERY 3 WEEKS, DAY 1, 200 MG/DAY
  6. CAPECITABINE. [Suspect]
     Active Substance: CAPECITABINE
     Indication: COLON CANCER STAGE IV
     Dosage: EVERY 3 WEEKS, DAY 1?14, 800 MG?2/DAY
  7. CAPECITABINE. [Suspect]
     Active Substance: CAPECITABINE
     Indication: METASTASES TO LIVER
     Dosage: EVERY 3 WEEKS, DAY 1?14, 6TH TO 8TH COURSES WERE REDUCED
  8. OXALIPLATIN. [Suspect]
     Active Substance: OXALIPLATIN
     Indication: COLORECTAL CANCER
  9. OXALIPLATIN. [Suspect]
     Active Substance: OXALIPLATIN
     Indication: METASTASES TO LIVER
  10. OXALIPLATIN. [Suspect]
     Active Substance: OXALIPLATIN
     Indication: TUMOUR INVASION

REACTIONS (3)
  - Acute myeloid leukaemia [Fatal]
  - Cytogenetic abnormality [Fatal]
  - Hypoaesthesia [Unknown]
